FAERS Safety Report 10526981 (Version 2)
Quarter: 2014Q4

REPORT INFORMATION
  Report Type: Spontaneous
  Country: US (occurrence: None)
  Receive Date: 20141016
  Receipt Date: 20141117
  Transmission Date: 20150528
  Serious: Yes (Other)
  Sender: FDA-Public Use
  Company Number: 2014-US-013149

PATIENT
  Age: 68 Year
  Sex: Female

DRUGS (2)
  1. XYREM [Suspect]
     Active Substance: SODIUM OXYBATE
     Indication: SOMNOLENCE
     Route: 048
     Dates: start: 201301, end: 2013
  2. XYREM [Suspect]
     Active Substance: SODIUM OXYBATE
     Indication: NARCOLEPSY
     Route: 048
     Dates: start: 201301, end: 2013

REACTIONS (1)
  - Aortic aneurysm [None]

NARRATIVE: CASE EVENT DATE: 201407
